FAERS Safety Report 11889787 (Version 1)
Quarter: 2016Q1

REPORT INFORMATION
  Report Type: Spontaneous
  Country: IT (occurrence: IT)
  Receive Date: 20160105
  Receipt Date: 20160105
  Transmission Date: 20160526
  Serious: Yes (Other)
  Sender: FDA-Public Use
  Company Number: IT-FRESENIUS KABI-FK201600011

PATIENT
  Age: 38 Year
  Sex: Female

DRUGS (2)
  1. ROPIVACAINE (MANUFACTURER UNKNOWN) (ROPIVACAINE) (ROPIVACAINE) [Suspect]
     Active Substance: ROPIVACAINE
     Indication: LABOUR PAIN
     Route: 008
  2. FENTANYL. [Concomitant]
     Active Substance: FENTANYL
     Indication: LABOUR PAIN
     Route: 008

REACTIONS (4)
  - Obstructed labour [Recovered/Resolved]
  - Post herpetic neuralgia [Recovered/Resolved]
  - Drug ineffective [Recovered/Resolved]
  - Caesarean section [None]
